FAERS Safety Report 20245733 (Version 2)
Quarter: 2022Q1

REPORT INFORMATION
  Report Type: Spontaneous
  Country: RU (occurrence: None)
  Receive Date: 20211229
  Receipt Date: 20220111
  Transmission Date: 20220423
  Serious: Yes (Other)
  Sender: FDA-Public Use
  Company Number: 2021A901874

PATIENT
  Sex: Male
  Weight: 102 kg

DRUGS (1)
  1. DAPAGLIFLOZIN [Suspect]
     Active Substance: DAPAGLIFLOZIN
     Indication: Cardiac failure
     Route: 048
     Dates: start: 20211214, end: 20211221

REACTIONS (2)
  - Hypoglycaemia [Recovered/Resolved]
  - Tremor [Recovered/Resolved]
